FAERS Safety Report 5610925-7 (Version None)
Quarter: 2008Q1

REPORT INFORMATION
  Report Type: 
  Country: None (occurrence: None)
  Receive Date: 20080201
  Receipt Date: 20080115
  Transmission Date: 20080703
  Serious: No
  Sender: FDA-Public Use
  Company Number: IE-PFIZER INC-2007096508

PATIENT
  Sex: Male
  Weight: 82 kg

DRUGS (2)
  1. LIPITOR [Suspect]
     Indication: BLOOD CHOLESTEROL INCREASED
     Route: 048
     Dates: start: 20030204, end: 20030630
  2. PARACETAMOL [Concomitant]
     Route: 048

REACTIONS (3)
  - EPILEPSY [None]
  - GRAND MAL CONVULSION [None]
  - NO ADVERSE EVENT [None]
